FAERS Safety Report 16677265 (Version 1)
Quarter: 2019Q3

REPORT INFORMATION
  Report Type: Spontaneous
  Country: JP (occurrence: JP)
  Receive Date: 20190807
  Receipt Date: 20190807
  Transmission Date: 20191004
  Serious: Yes (Other)
  Sender: FDA-Public Use
  Company Number: JP-PFIZER INC-2019332899

PATIENT
  Age: 70 Year
  Sex: Female

DRUGS (1)
  1. IBRANCE [Suspect]
     Active Substance: PALBOCICLIB
     Indication: BREAST CANCER RECURRENT
     Dosage: 100 MG, DAILY
     Route: 048
     Dates: start: 201905

REACTIONS (3)
  - Renal impairment [Unknown]
  - Malignant ascites [Unknown]
  - Neoplasm recurrence [Unknown]
